FAERS Safety Report 5909432-3 (Version None)
Quarter: 2008Q4

REPORT INFORMATION
  Report Type: 
  Country: None (occurrence: None)
  Receive Date: 20081001
  Receipt Date: 20080922
  Transmission Date: 20090506
  Serious: Yes (Hospitalization, Disabling)
  Sender: FDA-Public Use
  Company Number: GXKR2008DK09136

PATIENT
  Age: 64 Year
  Sex: Male
  Weight: 75 kg

DRUGS (6)
  1. SIMVASTATIN [Suspect]
     Indication: HYPERCHOLESTEROLAEMIA
     Dosage: 40 MG/DAY, ORAL
     Route: 048
     Dates: start: 20080522, end: 20080702
  2. APROVEL (IRBESARTAN) FILM-COATED TABLET, 300 MG [Concomitant]
  3. CENTYL MITE W/POTASSIUM CHLORIDE (BENDROFLUMETHIAZIDE, POTASSIUM CHLOR [Concomitant]
  4. LANZOPRAZOL (LANSOPRAZOLE), 30 MG [Concomitant]
  5. REMERON (MIRTAZAPINE) LYOPHILISATE, 15 MG [Concomitant]
  6. ATENOLOL (ATENOLOL) TABLET, 50 MG [Concomitant]

REACTIONS (4)
  - CONFUSIONAL STATE [None]
  - DISSOCIATION [None]
  - MEMORY IMPAIRMENT [None]
  - TREMOR [None]
